FAERS Safety Report 7123611-1 (Version None)
Quarter: 2010Q4

REPORT INFORMATION
  Report Type: 
  Country: None (occurrence: None)
  Receive Date: 20101125
  Receipt Date: 20101110
  Transmission Date: 20110411
  Serious: Yes (Other)
  Sender: FDA-Public Use
  Company Number: GB-JNJFOC-20101107352

PATIENT
  Age: 48 Year
  Sex: Female
  Weight: 87 kg

DRUGS (7)
  1. TOPIRAMATE [Suspect]
     Indication: DRUG THERAPY
     Route: 048
  2. RISPERIDONE [Suspect]
     Indication: ILL-DEFINED DISORDER
     Route: 065
  3. LAMOTRIGINE [Suspect]
     Indication: ILL-DEFINED DISORDER
     Route: 065
  4. LOFEPRAMINE [Suspect]
     Indication: ILL-DEFINED DISORDER
     Route: 065
  5. ANTIDEPRESSANTS [Suspect]
     Indication: ILL-DEFINED DISORDER
     Route: 065
  6. CARDIOVASCULAR MEDICATIONS [Suspect]
     Indication: ILL-DEFINED DISORDER
     Route: 065
  7. PSYCHOTROPICS NOS [Suspect]
     Indication: ILL-DEFINED DISORDER
     Route: 065

REACTIONS (3)
  - PARAESTHESIA [None]
  - PARKINSONISM [None]
  - WEIGHT DECREASED [None]
